FAERS Safety Report 9472401 (Version 1)
Quarter: 2013Q3

REPORT INFORMATION
  Report Type: Spontaneous
  Country: US (occurrence: None)
  Receive Date: 20130821
  Receipt Date: 20130821
  Transmission Date: 20140515
  Serious: No
  Sender: FDA-Public Use
  Company Number: None

PATIENT
  Age: 32 Year
  Sex: Female
  Weight: 58.51 kg

DRUGS (1)
  1. MIRENA IUD [Suspect]

REACTIONS (2)
  - Vaginal odour [None]
  - Vaginitis bacterial [None]
